FAERS Safety Report 15206555 (Version 3)
Quarter: 2019Q4

REPORT INFORMATION
  Report Type: Spontaneous
  Country: US (occurrence: US)
  Receive Date: 20180727
  Receipt Date: 20191213
  Transmission Date: 20200122
  Serious: No
  Sender: FDA-Public Use
  Company Number: US-PFIZER INC-2018299471

PATIENT
  Age: 55 Year
  Sex: Female

DRUGS (28)
  1. ADDERALL [Suspect]
     Active Substance: AMPHETAMINE ASPARTATE\AMPHETAMINE SULFATE\DEXTROAMPHETAMINE SACCHARATE\DEXTROAMPHETAMINE SULFATE
     Dosage: UNK
     Dates: start: 201209, end: 201810
  2. RITALIN [Suspect]
     Active Substance: METHYLPHENIDATE HYDROCHLORIDE
     Dosage: UNK
     Dates: start: 201209, end: 201810
  3. ZYPREXA [Suspect]
     Active Substance: OLANZAPINE
     Dosage: UNK
     Dates: start: 201209, end: 201810
  4. LEXAPRO [Suspect]
     Active Substance: ESCITALOPRAM OXALATE
     Dosage: UNK
     Dates: start: 201209, end: 201810
  5. L-METHYLFOLATE [Suspect]
     Active Substance: LEVOMEFOLIC ACID
     Dosage: UNK
     Dates: start: 201209, end: 201810
  6. 5 HTP [ASCORBIC ACID;BIOTIN;FOLIC ACID;NICOTINAMIDE;OXITRIPTAN;PYRIDOX [Suspect]
     Active Substance: OXITRIPTAN\VITAMINS\ZINC
     Dosage: UNK
     Dates: start: 201209, end: 201810
  7. GEODON [Suspect]
     Active Substance: ZIPRASIDONE HYDROCHLORIDE\ZIPRASIDONE MESYLATE
     Dosage: 20 MG, UNK
     Dates: start: 201209, end: 201810
  8. PRAZOSIN HCL [Suspect]
     Active Substance: PRAZOSIN HYDROCHLORIDE
     Dosage: UNK
     Dates: start: 201209, end: 201810
  9. METOPROLOL TARTRATE. [Suspect]
     Active Substance: METOPROLOL TARTRATE
     Dosage: 75 MG, UNK
     Dates: start: 201209, end: 201810
  10. BUSPAR [Suspect]
     Active Substance: BUSPIRONE HYDROCHLORIDE
     Dosage: 90 MG, UNK
     Dates: start: 201209, end: 201810
  11. CONCERTA [Suspect]
     Active Substance: METHYLPHENIDATE HYDROCHLORIDE
     Dosage: UNK
     Dates: start: 201209, end: 201810
  12. LATUDA [Suspect]
     Active Substance: LURASIDONE HYDROCHLORIDE
     Dosage: UNK
     Dates: start: 201209, end: 201810
  13. TOPAMAX [Suspect]
     Active Substance: TOPIRAMATE
     Dosage: UNK
     Dates: start: 201209, end: 201810
  14. VIIBRYD [Suspect]
     Active Substance: VILAZODONE HYDROCHLORIDE
     Dosage: UNK
     Dates: start: 201209, end: 201810
  15. TRAZODONE [Suspect]
     Active Substance: TRAZODONE HYDROCHLORIDE
     Dosage: UNK
     Dates: start: 201209, end: 201810
  16. LAMICTAL [Suspect]
     Active Substance: LAMOTRIGINE
     Dosage: 75 MG, UNK
     Dates: start: 201209, end: 201810
  17. GABAPENTIN. [Suspect]
     Active Substance: GABAPENTIN
     Dosage: UNK
  18. PROZAC [Suspect]
     Active Substance: FLUOXETINE HYDROCHLORIDE
     Dosage: UNK
     Dates: start: 201209, end: 201810
  19. L-TYROSINE [Suspect]
     Active Substance: TYROSINE
     Dosage: UNK
     Dates: start: 201209, end: 201810
  20. CYMBALTA [Suspect]
     Active Substance: DULOXETINE HYDROCHLORIDE
     Dosage: UNK
     Dates: start: 201209, end: 201810
  21. GUANFACINE. [Suspect]
     Active Substance: GUANFACINE
     Dosage: UNK
     Dates: start: 201209, end: 201810
  22. NEURONTIN [Suspect]
     Active Substance: GABAPENTIN
     Dosage: 300 MG, AS NEEDED
     Dates: start: 201209, end: 201810
  23. NEURONTIN [Suspect]
     Active Substance: GABAPENTIN
     Dosage: 600 MG, AS NEEDED
  24. SEROQUEL [Suspect]
     Active Substance: QUETIAPINE FUMARATE
     Dosage: UNK
     Dates: start: 201209, end: 201810
  25. WELLBUTRIN [Suspect]
     Active Substance: BUPROPION HYDROCHLORIDE
     Dosage: UNK
     Dates: start: 201209, end: 201810
  26. KLONOPIN [Suspect]
     Active Substance: CLONAZEPAM
     Dosage: UNK
     Dates: start: 201209, end: 201810
  27. XANAX [Suspect]
     Active Substance: ALPRAZOLAM
     Dosage: UNK
     Dates: start: 201209, end: 201810
  28. ZIPRASIDONE HCL [Suspect]
     Active Substance: ZIPRASIDONE HYDROCHLORIDE
     Dosage: UNK

REACTIONS (1)
  - Drug ineffective [Unknown]
